FAERS Safety Report 8907035 (Version 2)
Quarter: 2012Q4

REPORT INFORMATION
  Report Type: 
  Country: FR (occurrence: FR)
  Receive Date: 20121113
  Receipt Date: 20121126
  Transmission Date: 20130627
  Serious: Yes (Other)
  Sender: FDA-Public Use
  Company Number: FR-TEVA-369186ISR

PATIENT
  Age: 72 Year
  Sex: Female

DRUGS (7)
  1. VOLTARENPLAST [Suspect]
     Indication: MUSCULOSKELETAL PAIN
     Dosage: 2 Dosage forms Daily;
     Route: 062
     Dates: start: 20121029, end: 20121029
  2. ESOMEPRAZOLE [Concomitant]
  3. ACTONEL [Concomitant]
  4. CALCIDOSE [Concomitant]
  5. ANTIHYPERTENSIVES [Concomitant]
  6. IXPRIM [Concomitant]
  7. HYDROCHLOROTHIAZIDE W/VALSARTAN [Concomitant]

REACTIONS (4)
  - Bronchitis [Not Recovered/Not Resolved]
  - Chest pain [Not Recovered/Not Resolved]
  - Respiratory disorder [Not Recovered/Not Resolved]
  - Oesophageal pain [Not Recovered/Not Resolved]
